FAERS Safety Report 15565493 (Version 5)
Quarter: 2019Q1

REPORT INFORMATION
  Report Type: Spontaneous
  Country: US (occurrence: US)
  Receive Date: 20181030
  Receipt Date: 20190128
  Transmission Date: 20190417
  Serious: No
  Sender: FDA-Public Use
  Company Number: PHEH2018US045091

PATIENT
  Age: 91 Year
  Sex: Male

DRUGS (6)
  1. LENVATINIB [Suspect]
     Active Substance: LENVATINIB
     Indication: REMISSION NOT ACHIEVED
  2. LENVATINIB [Suspect]
     Active Substance: LENVATINIB
     Indication: PHILADELPHIA CHROMOSOME POSITIVE
  3. AFINITOR [Suspect]
     Active Substance: EVEROLIMUS
     Indication: RENAL CANCER
     Dosage: 5 MG, QD
     Route: 048
     Dates: end: 201810
  4. LENVATINIB [Suspect]
     Active Substance: LENVATINIB
     Indication: RENAL CANCER
     Dosage: 18 MG, QD
     Route: 048
     Dates: end: 201810
  5. LENVATINIB [Suspect]
     Active Substance: LENVATINIB
     Indication: CHRONIC MYELOID LEUKAEMIA
  6. PREDNISONE. [Concomitant]
     Active Substance: PREDNISONE
     Indication: PRODUCT USED FOR UNKNOWN INDICATION
     Dosage: UNK
     Route: 065

REACTIONS (13)
  - Fatigue [Unknown]
  - Pleural effusion [Unknown]
  - Epistaxis [Unknown]
  - Blood pressure increased [Recovered/Resolved]
  - Peripheral swelling [Unknown]
  - Dyspnoea [Recovered/Resolved]
  - Sinusitis [Unknown]
  - Secretion discharge [Unknown]
  - Heart rate increased [Unknown]
  - Dyspepsia [Unknown]
  - Cough [Recovered/Resolved]
  - Asthenia [Unknown]
  - Swelling [Recovered/Resolved]

NARRATIVE: CASE EVENT DATE: 20180907
